FAERS Safety Report 8578953-X (Version None)
Quarter: 2012Q3

REPORT INFORMATION
  Report Type: 
  Country: None (occurrence: None)
  Receive Date: 20120726
  Receipt Date: 20120718
  Transmission Date: 20120928
  Serious: Yes (Hospitalization)
  Sender: FDA-Public Use
  Company Number: 2012HGS-003761

PATIENT
  Age: 59 Year
  Sex: Female

DRUGS (18)
  1. NAPROXEN [Concomitant]
  2. FOLATE  (FOLIC ACID)(FOLIC ACID) [Concomitant]
  3. ENDOCET (OXYOOCET)(PARACETAMOL, OXYCODONE HYDROCHLORIDE) [Concomitant]
  4. ASPIRIN [Concomitant]
  5. TOPAMAX (TOPIRAMATE)(TOPIRAMATE) [Concomitant]
  6. AMBIEN [Concomitant]
  7. ZOFRAN [Concomitant]
  8. BENLYSTA [Suspect]
     Indication: SYSTEMIC LUPUS ERYTHEMATOSUS
     Dosage: 10 MG/KG, INTRAVENOUS DRIP
     Route: 041
     Dates: start: 20120518, end: 20120518
  9. COLACE (DOCUSATE SODIUM)(DOCUSATE SODIUM) [Concomitant]
  10. CELLCEPT (MYCOPHENOLATE MOFETIL)(MYCOPHENOLATE MOFETIL) [Concomitant]
  11. LASIX [Concomitant]
  12. PHENERGAN (PROMETHAZINE)(PROMETHAZINE) [Concomitant]
  13. PREMPRO (PROVELLA-14)(MEDROXYPROGESTERONE ACETATE, ESTROGENS CONJUGATE [Concomitant]
  14. CYMBALTA (DULOXETINE HYDROCHLORIDE) (DULOXETINE HYDROCHLORIDE) [Concomitant]
  15. NEURONTIN [Concomitant]
  16. POTASSIUM (POTASSIUM)(POTASSIUM) [Concomitant]
  17. PREDNISONE [Concomitant]
  18. VITAMIN D (ERGOCALCIFEROL)(ERGOCALCIFEROL) [Concomitant]

REACTIONS (10)
  - BRADYCARDIA [None]
  - GASTRITIS [None]
  - ANXIETY [None]
  - DEPRESSED MOOD [None]
  - NIGHTMARE [None]
  - NON-CARDIAC CHEST PAIN [None]
  - SUICIDAL IDEATION [None]
  - NAUSEA [None]
  - VOMITING [None]
  - DEHYDRATION [None]
